FAERS Safety Report 4356551-1 (Version None)
Quarter: 2004Q2

REPORT INFORMATION
  Report Type: 
  Country: None (occurrence: None)
  Receive Date: 20040512
  Receipt Date: 20040316
  Transmission Date: 20050107
  Serious: Yes (Other)
  Sender: FDA-Public Use
  Company Number: JP-BRISTOL-MYERS SQUIBB COMPANY-12537262

PATIENT
  Age: 3 Year
  Sex: Female

DRUGS (4)
  1. PARAPLATIN [Suspect]
     Indication: NEUROBLASTOMA
     Route: 042
     Dates: start: 19930125, end: 19930925
  2. VEPESID [Suspect]
     Indication: NEUROBLASTOMA
     Route: 042
     Dates: start: 19930126, end: 19930127
  3. MELPHALAN [Concomitant]
     Route: 042
     Dates: start: 19930129, end: 19930131
  4. RADIOTHERAPY [Concomitant]
     Dosage: 42 GY
     Dates: start: 19930107, end: 19930116

REACTIONS (2)
  - BODY HEIGHT BELOW NORMAL [None]
  - HYPOTHYROIDISM [None]
